FAERS Safety Report 15457686 (Version 2)
Quarter: 2018Q4

REPORT INFORMATION
  Report Type: Spontaneous
  Country: UA (occurrence: UA)
  Receive Date: 20181003
  Receipt Date: 20181029
  Transmission Date: 20190204
  Serious: Yes (Hospitalization)
  Sender: FDA-Public Use
  Company Number: UA-TEVA-2018-UA-959290

PATIENT
  Age: 57 Year
  Sex: Female

DRUGS (6)
  1. ATORVASTATIN [Concomitant]
     Active Substance: ATORVASTATIN
     Indication: MYOCARDIAL ISCHAEMIA
     Dosage: 20 MILLIGRAM DAILY;
     Route: 065
  2. ACETYLSALICYLIC ACID [Concomitant]
     Active Substance: ASPIRIN
     Indication: SINUS NODE DYSFUNCTION
  3. ACETYLSALICYLIC ACID [Concomitant]
     Active Substance: ASPIRIN
     Indication: MYOCARDIAL ISCHAEMIA
     Dosage: 100 MILLIGRAM DAILY;
     Route: 065
  4. AMIODARONE [Suspect]
     Active Substance: AMIODARONE
     Indication: SINUS NODE DYSFUNCTION
  5. AMIODARONE [Suspect]
     Active Substance: AMIODARONE
     Indication: MYOCARDIAL ISCHAEMIA
     Dosage: 200 MILLIGRAM DAILY;
     Route: 065
  6. ATORVASTATIN [Concomitant]
     Active Substance: ATORVASTATIN
     Indication: SINUS NODE DYSFUNCTION

REACTIONS (17)
  - Exophthalmos [Recovered/Resolved]
  - Pyrexia [Recovered/Resolved]
  - Toxicity to various agents [Recovered/Resolved]
  - Thyroid disorder [Recovered/Resolved]
  - Sunburn [Recovering/Resolving]
  - Pulmonary toxicity [Recovered/Resolved]
  - Tremor [Recovered/Resolved]
  - Skin hyperpigmentation [Recovering/Resolving]
  - Dizziness [Recovered/Resolved]
  - Dyspnoea at rest [Recovered/Resolved]
  - Photosensitivity reaction [Recovering/Resolving]
  - Headache [Recovered/Resolved]
  - Asthenia [Recovered/Resolved]
  - Fatigue [Recovered/Resolved]
  - Dyspnoea exertional [Recovered/Resolved]
  - Hyperhidrosis [Recovered/Resolved]
  - Alopecia [Recovered/Resolved]
